FAERS Safety Report 6603312-6 (Version None)
Quarter: 2010Q1

REPORT INFORMATION
  Report Type: 
  Country: None (occurrence: None)
  Receive Date: 20100226
  Receipt Date: 20090112
  Transmission Date: 20100710
  Serious: No
  Sender: FDA-Public Use
  Company Number: A0763241A

PATIENT
  Age: 39 Year
  Sex: Female

DRUGS (3)
  1. VALTREX [Suspect]
     Dosage: 2G SINGLE DOSE
     Route: 048
     Dates: start: 20081029, end: 20081101
  2. ZOVIRAX [Suspect]
     Route: 061
     Dates: start: 20081001
  3. ANTIDEPRESSANT [Concomitant]

REACTIONS (2)
  - DRUG INEFFECTIVE [None]
  - THERAPEUTIC RESPONSE UNEXPECTED [None]
